FAERS Safety Report 7671088-X (Version None)
Quarter: 2011Q3

REPORT INFORMATION
  Report Type: 
  Country: None (occurrence: None)
  Receive Date: 20110809
  Receipt Date: 20110729
  Transmission Date: 20111222
  Serious: Yes (Hospitalization, Other)
  Sender: FDA-Public Use
  Company Number: FR-JNJFOC-20110801856

PATIENT
  Sex: Male
  Weight: 33 kg

DRUGS (2)
  1. RISPERDAL [Suspect]
     Route: 048
     Dates: start: 20100701, end: 20110202
  2. RISPERDAL [Suspect]
     Indication: PRODUCT USED FOR UNKNOWN INDICATION
     Route: 048
     Dates: start: 20110314, end: 20110405

REACTIONS (4)
  - ABNORMAL BEHAVIOUR [None]
  - HYPERBILIRUBINAEMIA [None]
  - VOMITING [None]
  - ABDOMINAL PAIN [None]
